FAERS Safety Report 19567689 (Version 1)
Quarter: 2021Q3

REPORT INFORMATION
  Report Type: Spontaneous
  Country: PL (occurrence: PL)
  Receive Date: 20210716
  Receipt Date: 20210716
  Transmission Date: 20211014
  Serious: Yes (Hospitalization, Other)
  Sender: FDA-Public Use
  Company Number: PL-B.I. PHARMACEUTICALS,INC./RIDGEFIELD-2021-BI-115571

PATIENT
  Sex: Female

DRUGS (1)
  1. PRADAXA [Suspect]
     Active Substance: DABIGATRAN ETEXILATE MESYLATE
     Indication: PRODUCT USED FOR UNKNOWN INDICATION
     Dosage: THE PATIENT DID NOT FOLLOW THE DOCTOR^S RECOMMENDATIONS AND DID NOT TAKE THE DRUG REGULARLY.
     Route: 065

REACTIONS (2)
  - Head injury [Unknown]
  - Subarachnoid haemorrhage [Recovering/Resolving]
